FAERS Safety Report 8251959-6 (Version None)
Quarter: 2012Q2

REPORT INFORMATION
  Report Type: 
  Country: None (occurrence: None)
  Receive Date: 20120402
  Receipt Date: 20120326
  Transmission Date: 20120825
  Serious: Yes (Other)
  Sender: FDA-Public Use
  Company Number: PHHY2012US026519

PATIENT
  Age: 35 Year
  Sex: Male

DRUGS (7)
  1. ALPRAZOLAM [Suspect]
     Dosage: 1 MG, QD
  2. HALOPERIDOL [Suspect]
     Indication: SCHIZOPHRENIA
  3. ALPRAZOLAM [Suspect]
     Indication: SCHIZOPHRENIA
     Dosage: UNKNOWN
  4. RISPERIDONE [Suspect]
     Indication: SCHIZOPHRENIA
     Dosage: UNKNOWN
  5. BENZTROPINE MESYLATE [Suspect]
     Indication: DYSTONIA
     Dosage: 2 MG, BID
  6. RISPERIDONE [Suspect]
     Dosage: 4 MG, QD
  7. QUETIAPINE [Suspect]
     Indication: SCHIZOPHRENIA
     Dosage: 100 MG, QD

REACTIONS (7)
  - POSTURE ABNORMAL [None]
  - GAIT DISTURBANCE [None]
  - TARDIVE DYSKINESIA [None]
  - DYSKINESIA [None]
  - DYSPNOEA [None]
  - CHOREA [None]
  - BALANCE DISORDER [None]
